FAERS Safety Report 21286818 (Version 1)
Quarter: 2022Q3

REPORT INFORMATION
  Report Type: Spontaneous
  Country: US (occurrence: US)
  Receive Date: 20220902
  Receipt Date: 20220902
  Transmission Date: 20221026
  Serious: Yes (Hospitalization)
  Sender: FDA-Public Use
  Company Number: US-MYLANLABS-2022M1090331

PATIENT
  Age: 59 Year
  Sex: Female

DRUGS (1)
  1. LIDOCAINE [Suspect]
     Active Substance: LIDOCAINE
     Indication: Spinal anaesthesia
     Dosage: UNK
     Route: 065

REACTIONS (7)
  - Confusional state [Recovering/Resolving]
  - Restlessness [Recovering/Resolving]
  - Hallucination [Recovering/Resolving]
  - Nystagmus [Recovering/Resolving]
  - Akathisia [Recovering/Resolving]
  - Dysarthria [Recovering/Resolving]
  - Diplopia [Recovering/Resolving]
